FAERS Safety Report 6494034-3 (Version None)
Quarter: 2009Q4

REPORT INFORMATION
  Report Type: 
  Country: None (occurrence: None)
  Receive Date: 20091214
  Receipt Date: 20081211
  Transmission Date: 20100525
  Serious: No
  Sender: FDA-Public Use
  Company Number: US-BRISTOL-MYERS SQUIBB COMPANY-14441554

PATIENT

DRUGS (2)
  1. ABILIFY [Suspect]
     Indication: DEPRESSION
     Dosage: 1 DOSAGE FORM = 2MG TO 5MG
  2. ANTIDEPRESSANT [Concomitant]

REACTIONS (1)
  - MIDDLE INSOMNIA [None]
